FAERS Safety Report 7118308-8 (Version None)
Quarter: 2010Q4

REPORT INFORMATION
  Report Type: 
  Country: None (occurrence: None)
  Receive Date: 20101123
  Receipt Date: 20101112
  Transmission Date: 20110411
  Serious: Yes (Hospitalization, Other)
  Sender: FDA-Public Use
  Company Number: US-JNJFOC-20101105256

PATIENT
  Sex: Female
  Weight: 70.31 kg

DRUGS (4)
  1. UNSPECIFIED FENTANYL TRANSDERMAL SYTEM [Suspect]
     Indication: BACK PAIN
     Route: 062
  2. UNSPECIFIED FENTANYL TRANSDERMAL SYTEM [Suspect]
     Route: 062
  3. UNSPECIFIED FENTANYL TRANSDERMAL SYTEM [Suspect]
     Route: 062
  4. SANDOZ FENTANYL TRANSDERMAL SYSTEM [Suspect]
     Indication: PAIN
     Dosage: NDC# 0781-7241-55
     Route: 062

REACTIONS (16)
  - ANXIETY [None]
  - BACK PAIN [None]
  - BRONCHITIS [None]
  - DELUSION [None]
  - DRUG DISPENSING ERROR [None]
  - FOOD CRAVING [None]
  - HALLUCINATION [None]
  - OVERDOSE [None]
  - PARANOIA [None]
  - PRODUCT ADHESION ISSUE [None]
  - PRODUCT QUALITY ISSUE [None]
  - RENAL DISORDER [None]
  - SALT CRAVING [None]
  - TREMOR [None]
  - WITHDRAWAL SYNDROME [None]
  - WRONG TECHNIQUE IN DRUG USAGE PROCESS [None]
